FAERS Safety Report 15034352 (Version 1)
Quarter: 2018Q3

REPORT INFORMATION
  Report Type: Spontaneous
  Country: US (occurrence: US)
  Receive Date: 20180620
  Receipt Date: 20180620
  Transmission Date: 20181010
  Serious: No
  Sender: FDA-Public Use
  Company Number: US-TEVA-787653ACC

PATIENT
  Sex: Female

DRUGS (1)
  1. CIPROFLOXIN HCL [Suspect]
     Active Substance: CIPROFLOXACIN HYDROCHLORIDE

REACTIONS (4)
  - Nightmare [Unknown]
  - Delusion [Unknown]
  - Mood altered [Unknown]
  - Thinking abnormal [Unknown]
